FAERS Safety Report 4544846-8 (Version None)
Quarter: 2005Q1

REPORT INFORMATION
  Report Type: 
  Country: None (occurrence: None)
  Receive Date: 20050103
  Receipt Date: 20050103
  Transmission Date: 20050727
  Serious: Yes (Other)
  Sender: FDA-Public Use
  Company Number: None

PATIENT
  Age: 45 Year
  Sex: Female
  Weight: 70.3075 kg

DRUGS (2)
  1. PHENYLPROPANOLAMINE [Suspect]
     Indication: SINUSITIS
     Dates: start: 19961010, end: 19961017
  2. ELAVIL [Concomitant]

REACTIONS (1)
  - ANXIETY [None]
